FAERS Safety Report 22280687 (Version 1)
Quarter: 2023Q2

REPORT INFORMATION
  Report Type: Spontaneous
  Country: US (occurrence: None)
  Receive Date: 20230502
  Receipt Date: 20230502
  Transmission Date: 20230721
  Serious: Yes (Disabling, Other)
  Sender: FDA-Public Use
  Company Number: None

PATIENT
  Age: 54 Year
  Sex: Female
  Weight: 78.75 kg

DRUGS (6)
  1. OXYCODONE AND ACETAMINOPHEN [Suspect]
     Active Substance: ACETAMINOPHEN\OXYCODONE HYDROCHLORIDE
     Indication: Pain
     Dosage: OTHER QUANTITY : 90 TABLET(S);?FREQUENCY : EVERY 8 HOURS;?
     Route: 048
     Dates: start: 20230502
  2. flexeril [Concomitant]
  3. KETOROLAC [Concomitant]
     Active Substance: KETOROLAC TROMETHAMINE
  4. TYLENOL [Concomitant]
     Active Substance: ACETAMINOPHEN
  5. ADVIL [Concomitant]
     Active Substance: IBUPROFEN
  6. OXYCODONE [Concomitant]
     Active Substance: OXYCODONE

REACTIONS (6)
  - Therapeutic product effect decreased [None]
  - Headache [None]
  - Drug hypersensitivity [None]
  - Paraesthesia [None]
  - Cerebral haemorrhage [None]
  - Product formulation issue [None]

NARRATIVE: CASE EVENT DATE: 20230502
